FAERS Safety Report 24426725 (Version 2)
Quarter: 2024Q4

REPORT INFORMATION
  Report Type: Spontaneous
  Country: AU (occurrence: AU)
  Receive Date: 20241011
  Receipt Date: 20241220
  Transmission Date: 20250115
  Serious: Yes (Other)
  Sender: ROCHE
  Company Number: AU-002147023-NVSC2024AU197918

PATIENT
  Age: 41 Year
  Sex: Female

DRUGS (2)
  1. OMALIZUMAB [Suspect]
     Active Substance: OMALIZUMAB
     Indication: Chronic spontaneous urticaria
     Route: 050
  2. OMALIZUMAB [Suspect]
     Active Substance: OMALIZUMAB
     Dosage: UNK (RE-STARTED DOSE)
     Route: 058

REACTIONS (1)
  - Myasthenia gravis [Recovered/Resolved]
